FAERS Safety Report 19075377 (Version 1)
Quarter: 2021Q1

REPORT INFORMATION
  Report Type: Other
  Country: PL (occurrence: PL)
  Receive Date: 20210331
  Receipt Date: 20210331
  Transmission Date: 20210420
  Serious: Yes (Life-Threatening)
  Sender: FDA-Public Use
  Company Number: PL-ASTELLAS-2021US010881

PATIENT
  Age: 16 Year
  Sex: Male

DRUGS (8)
  1. HYDROCHLOROTHIAZIDE. [Concomitant]
     Active Substance: HYDROCHLOROTHIAZIDE
     Indication: HYPERTENSION
     Route: 048
     Dates: start: 20200227
  2. LEVOXA [Concomitant]
     Active Substance: LEVOFLOXACIN
     Indication: INFECTION PROPHYLAXIS
     Route: 048
     Dates: start: 20200213
  3. EQUORAL [Concomitant]
     Active Substance: CYCLOSPORINE
     Indication: PRODUCT USED FOR UNKNOWN INDICATION
     Route: 048
     Dates: start: 20200220, end: 20200301
  4. EQUORAL [Concomitant]
     Active Substance: CYCLOSPORINE
     Route: 048
     Dates: start: 20200302
  5. MYCAMINE [Suspect]
     Active Substance: MICAFUNGIN SODIUM
     Indication: STOMATITIS
     Route: 042
     Dates: start: 20200301, end: 20200301
  6. REVOLADE [Concomitant]
     Active Substance: ELTROMBOPAG OLAMINE
     Indication: PRODUCT USED FOR UNKNOWN INDICATION
     Route: 048
     Dates: start: 20200220
  7. BISEPTOL [Concomitant]
     Active Substance: SULFAMETHOXAZOLE\TRIMETHOPRIM
     Indication: INFECTION PROPHYLAXIS
     Route: 048
     Dates: start: 20200213
  8. PIMAFUCORT [BACITRACIN;DEXAMETHASONE;NATAMYCIN;NEOMYCIN SULFATE] [Concomitant]
     Indication: ANGULAR CHEILITIS
     Route: 061
     Dates: start: 20200223

REACTIONS (5)
  - Tonsillar hypertrophy [Recovered/Resolved]
  - Pharyngeal erythema [Recovered/Resolved]
  - Throat tightness [Recovered/Resolved]
  - Anxiety [Recovered/Resolved]
  - Cough [Recovered/Resolved]

NARRATIVE: CASE EVENT DATE: 20200301
